FAERS Safety Report 4565640-8 (Version None)
Quarter: 2005Q1

REPORT INFORMATION
  Report Type: 
  Country: None (occurrence: None)
  Receive Date: 20050131
  Receipt Date: 20050117
  Transmission Date: 20050727
  Serious: Yes (Hospitalization)
  Sender: FDA-Public Use
  Company Number: DE-JNJFOC-20050106982

PATIENT
  Sex: Male

DRUGS (4)
  1. TRAMADOL HCL [Suspect]
     Route: 049
  2. TRAMADOL HCL [Suspect]
     Route: 049
  3. NEURONTIN [Suspect]
     Route: 049
  4. NEURONTIN [Suspect]
     Route: 049

REACTIONS (2)
  - DRUG ABUSER [None]
  - PSYCHOTIC DISORDER [None]
